FAERS Safety Report 21727583 (Version 1)
Quarter: 2022Q4

REPORT INFORMATION
  Report Type: Report from Study
  Country: US (occurrence: US)
  Receive Date: 20221214
  Receipt Date: 20221214
  Transmission Date: 20230113
  Serious: No
  Sender: FDA-Public Use
  Company Number: US-ABBVIE-4197622

PATIENT
  Sex: Male

DRUGS (1)
  1. HUMIRA [Suspect]
     Active Substance: ADALIMUMAB
     Indication: Acne
     Dosage: FORM STRENGTH 80 MG
     Route: 058

REACTIONS (3)
  - Injection site haemorrhage [Unknown]
  - Device issue [Not Recovered/Not Resolved]
  - Off label use [Unknown]
